FAERS Safety Report 6293517-9 (Version None)
Quarter: 2009Q3

REPORT INFORMATION
  Report Type: 
  Country: None (occurrence: None)
  Receive Date: 20090729
  Receipt Date: 20090715
  Transmission Date: 20100115
  Serious: Yes (Hospitalization)
  Sender: FDA-Public Use
  Company Number: 001329

PATIENT
  Sex: Male
  Weight: 100 kg

DRUGS (16)
  1. VIMPAT [Suspect]
     Dosage: (50 MG ORAL), (ORAL), (400 MG BID ORAL), (200 MG BID ORAL), (50 MG QD ORAL)
     Route: 048
     Dates: start: 20081205, end: 20081226
  2. VIMPAT [Suspect]
     Dosage: (50 MG ORAL), (ORAL), (400 MG BID ORAL), (200 MG BID ORAL), (50 MG QD ORAL)
     Route: 048
     Dates: start: 20081226, end: 20090306
  3. VIMPAT [Suspect]
     Dosage: (50 MG ORAL), (ORAL), (400 MG BID ORAL), (200 MG BID ORAL), (50 MG QD ORAL)
     Route: 048
     Dates: start: 20090307, end: 20090313
  4. VIMPAT [Suspect]
     Dosage: (50 MG ORAL), (ORAL), (400 MG BID ORAL), (200 MG BID ORAL), (50 MG QD ORAL)
     Route: 048
     Dates: start: 20090314, end: 20090320
  5. VIMPAT [Suspect]
     Dosage: (50 MG ORAL), (ORAL), (400 MG BID ORAL), (200 MG BID ORAL), (50 MG QD ORAL)
     Route: 048
     Dates: start: 20090321, end: 20090327
  6. VIMPAT [Suspect]
     Dosage: (50 MG ORAL), (ORAL), (400 MG BID ORAL), (200 MG BID ORAL), (50 MG QD ORAL)
     Route: 048
     Dates: start: 20090328, end: 20090403
  7. VIMPAT [Suspect]
     Dosage: (50 MG ORAL), (ORAL), (400 MG BID ORAL), (200 MG BID ORAL), (50 MG QD ORAL)
     Route: 048
     Dates: start: 20090404, end: 20090416
  8. VIMPAT [Suspect]
     Dosage: (50 MG ORAL), (ORAL), (400 MG BID ORAL), (200 MG BID ORAL), (50 MG QD ORAL)
     Route: 048
     Dates: start: 20090417, end: 20090607
  9. VIMPAT [Suspect]
     Dosage: (50 MG ORAL), (ORAL), (400 MG BID ORAL), (200 MG BID ORAL), (50 MG QD ORAL)
     Route: 048
     Dates: start: 20090608, end: 20090611
  10. VIMPAT [Suspect]
     Dosage: (50 MG ORAL), (ORAL), (400 MG BID ORAL), (200 MG BID ORAL), (50 MG QD ORAL)
     Route: 048
     Dates: start: 20090612, end: 20090617
  11. VIMPAT [Suspect]
     Dosage: (50 MG ORAL), (ORAL), (400 MG BID ORAL), (200 MG BID ORAL), (50 MG QD ORAL)
     Route: 048
     Dates: start: 20090618, end: 20090702
  12. VIMPAT [Suspect]
     Dosage: (50 MG ORAL), (ORAL), (400 MG BID ORAL), (200 MG BID ORAL), (50 MG QD ORAL)
     Route: 048
     Dates: start: 20090707, end: 20090710
  13. LAMICTAL [Concomitant]
  14. FRISIUM [Concomitant]
  15. VIGANTOLETTEN /00318501/ [Concomitant]
  16. CIPRALEX /01588501/ [Concomitant]

REACTIONS (3)
  - CONVULSION [None]
  - DEPRESSED MOOD [None]
  - WEIGHT INCREASED [None]
